FAERS Safety Report 9846919 (Version 4)
Quarter: 2015Q2

REPORT INFORMATION
  Report Type: Spontaneous
  Country: US (occurrence: US)
  Receive Date: 20140127
  Receipt Date: 20150622
  Transmission Date: 20150821
  Serious: Yes (Hospitalization, Other)
  Sender: FDA-Public Use
  Company Number: US-009507513-1401USA008383

PATIENT
  Sex: Female

DRUGS (1)
  1. FOSAMAX [Suspect]
     Active Substance: ALENDRONATE SODIUM
     Indication: OSTEOPOROSIS
     Dosage: 70 MG, QW
     Route: 048
     Dates: start: 20040207, end: 20061101

REACTIONS (9)
  - Gastrooesophageal reflux disease [Unknown]
  - Hypertension [Not Recovered/Not Resolved]
  - Hyperparathyroidism [Unknown]
  - Arthritis [Unknown]
  - Femur fracture [Unknown]
  - Blood cholesterol increased [Not Recovered/Not Resolved]
  - Gastritis [Unknown]
  - Tooth extraction [Unknown]
  - Pancreatitis [Unknown]

NARRATIVE: CASE EVENT DATE: 2006
